FAERS Safety Report 10008862 (Version 1)
Quarter: 2014Q1

REPORT INFORMATION
  Report Type: Spontaneous
  Country: FR (occurrence: FR)
  Receive Date: 20140313
  Receipt Date: 20140313
  Transmission Date: 20141002
  Serious: Yes (Other)
  Sender: FDA-Public Use
  Company Number: FR-GE HEALTHCARE MEDICAL DIAGNOSTICS-VISP-PR-1403S-0114

PATIENT
  Age: 85 Year
  Sex: Female

DRUGS (9)
  1. VISIPAQUE [Suspect]
     Indication: PRODUCT USED FOR UNKNOWN INDICATION
     Dosage: DOSE NOT REPORTED
     Route: 065
     Dates: start: 20140115, end: 20140115
  2. VISIPAQUE [Suspect]
     Indication: DIAGNOSTIC PROCEDURE
  3. RISORDAN [Concomitant]
  4. HEPARIN SODIUM [Concomitant]
  5. KRENOSIN [Concomitant]
  6. ISOPTINE [Concomitant]
  7. ATORVASTATIN [Concomitant]
  8. ASPEGIC [Concomitant]
  9. PROCORALAN [Concomitant]
     Dates: start: 20131209

REACTIONS (8)
  - Rash erythematous [Unknown]
  - Eye irritation [Unknown]
  - Pruritus [Unknown]
  - Ocular hyperaemia [Unknown]
  - Eye swelling [Unknown]
  - Foreign body sensation in eyes [Unknown]
  - Swelling face [Unknown]
  - Feeling hot [Unknown]
